FAERS Safety Report 4483532-X (Version None)
Quarter: 2004Q4

REPORT INFORMATION
  Report Type: 
  Country: None (occurrence: None)
  Receive Date: 20041020
  Receipt Date: 20041020
  Transmission Date: 20050328
  Serious: Yes (Hospitalization)
  Sender: FDA-Public Use
  Company Number: None

PATIENT
  Age: 70 Year
  Sex: Female

DRUGS (3)
  1. PHENYTOIN [Suspect]
     Indication: CONVULSION
     Dosage: 100 MG Q AM ORAL
     Route: 048
  2. PHENYTOIN [Suspect]
     Dosage: 200 MG QPM ORAL
     Route: 048
  3. ASPIRIN [Concomitant]

REACTIONS (7)
  - ANTICONVULSANT DRUG LEVEL ABOVE THERAPEUTIC [None]
  - ASTHENIA [None]
  - DIFFICULTY IN WALKING [None]
  - DISORIENTATION [None]
  - MUSCULOSKELETAL STIFFNESS [None]
  - PYREXIA [None]
  - URINARY INCONTINENCE [None]
